FAERS Safety Report 20040534 (Version 1)
Quarter: 2021Q4

REPORT INFORMATION
  Report Type: Spontaneous
  Country: US (occurrence: None)
  Receive Date: 20211104
  Receipt Date: 20211104
  Transmission Date: 20220303
  Serious: No
  Sender: FDA-Public Use
  Company Number: None

PATIENT

DRUGS (2)
  1. RUFINAMIDE [Suspect]
     Active Substance: RUFINAMIDE
     Route: 048
  2. BANZEL [Suspect]
     Active Substance: RUFINAMIDE

REACTIONS (1)
  - Product expiration date issue [None]
